FAERS Safety Report 8761223 (Version 2)
Quarter: 2012Q4

REPORT INFORMATION
  Report Type: 
  Country: US (occurrence: US)
  Receive Date: 20120830
  Receipt Date: 20121012
  Transmission Date: 20130627
  Serious: Yes (Death, Life-Threatening, Hospitalization, Disabling, Other)
  Sender: FDA-Public Use
  Company Number: US-GLAXOSMITHKLINE-A0990435A

PATIENT
  Age: 69 Year
  Sex: Female
  Weight: 48.4 kg

DRUGS (15)
  1. VOTRIENT [Suspect]
     Indication: SYNOVIAL SARCOMA
     Dosage: 800MG Per day
     Route: 048
     Dates: start: 20120730, end: 20120810
  2. ASPIRIN [Concomitant]
  3. FUROSEMIDE [Concomitant]
  4. METOPROLOL [Concomitant]
  5. MIRALAX [Concomitant]
  6. MVI [Concomitant]
  7. VITAMIN D [Concomitant]
  8. VAGIFEM [Concomitant]
  9. LORAZEPAM [Concomitant]
  10. PROCHLORPERAZINE [Concomitant]
  11. DILAUDID [Concomitant]
  12. ZOLPIDEM [Concomitant]
  13. KEPPRA [Concomitant]
  14. AMLODIPINE [Concomitant]
  15. TOPROL [Concomitant]

REACTIONS (11)
  - Malignant neoplasm progression [Fatal]
  - Grand mal convulsion [Recovering/Resolving]
  - Posterior reversible encephalopathy syndrome [Recovering/Resolving]
  - Convulsion [Recovering/Resolving]
  - Loss of consciousness [Unknown]
  - Infarction [Unknown]
  - Hypertensive encephalopathy [Unknown]
  - Hypertension [Recovering/Resolving]
  - Headache [Recovering/Resolving]
  - Aura [Recovering/Resolving]
  - Pleural effusion [Unknown]
